FAERS Safety Report 4332894-2 (Version None)
Quarter: 2004Q1

REPORT INFORMATION
  Report Type: 
  Country: None (occurrence: None)
  Receive Date: 20040330
  Receipt Date: 20040316
  Transmission Date: 20041129
  Serious: No
  Sender: FDA-Public Use
  Company Number: 2003UW15497

PATIENT
  Age: 71 Year
  Sex: Female
  Weight: 58.9676 kg

DRUGS (7)
  1. XYLOCAINE [Suspect]
     Indication: LOCAL ANAESTHESIA
     Dates: start: 20030908, end: 20030908
  2. TENORMIN [Concomitant]
  3. BEXTRA [Concomitant]
  4. RESTORIL [Concomitant]
  5. LOTREL [Concomitant]
  6. VITAMINS NOS [Concomitant]
  7. PROTONIX [Concomitant]

REACTIONS (1)
  - BLOOD PRESSURE INCREASED [None]
